FAERS Safety Report 7286589-6 (Version None)
Quarter: 2011Q1

REPORT INFORMATION
  Report Type: 
  Country: None (occurrence: None)
  Receive Date: 20110210
  Receipt Date: 20110208
  Transmission Date: 20110831
  Serious: No
  Sender: FDA-Public Use
  Company Number: US-PFIZER INC-2011009693

PATIENT
  Sex: Female
  Weight: 63.492 kg

DRUGS (1)
  1. PREMPRO [Suspect]
     Indication: HOT FLUSH
     Dosage: 1 DF, 1X/DAY
     Route: 048
     Dates: start: 20010101

REACTIONS (4)
  - MALAISE [None]
  - ABDOMINAL PAIN UPPER [None]
  - DRUG INEFFECTIVE [None]
  - VERTIGO [None]
